FAERS Safety Report 25968981 (Version 1)
Quarter: 2025Q4

REPORT INFORMATION
  Report Type: Spontaneous
  Country: EU (occurrence: EU)
  Receive Date: 20251028
  Receipt Date: 20251028
  Transmission Date: 20260118
  Serious: Yes (Other)
  Sender: CSL BEHRING
  Company Number: None

PATIENT
  Age: 36 Year
  Sex: Female
  Weight: 104 kg

DRUGS (2)
  1. RHOPHYLAC [Suspect]
     Active Substance: HUMAN RHO(D) IMMUNE GLOBULIN
     Indication: Rhesus incompatibility
     Dosage: 1 DF, SOLUTION FOR INJECT, 500 IU/ML (UNITS PER MILLILITER)
     Route: 065
     Dates: start: 20250902
  2. RHOPHYLAC [Suspect]
     Active Substance: HUMAN RHO(D) IMMUNE GLOBULIN
     Indication: Rhesus incompatibility
     Dosage: 1 DF, SOLUTION FOR INJECT, 500 IU/ML (UNITS PER MILLILITER)
     Route: 065
     Dates: start: 20250902

REACTIONS (8)
  - Foetal hypokinesia [Recovered/Resolved]
  - Maternal exposure during pregnancy [Unknown]
  - Headache [Recovered/Resolved]
  - Nausea [Recovered/Resolved]
  - Malaise [Recovered/Resolved]
  - Fatigue [Recovered/Resolved]
  - Myalgia [Recovered/Resolved]
  - Chills [Recovered/Resolved]
